FAERS Safety Report 4934091-6 (Version None)
Quarter: 2006Q1

REPORT INFORMATION
  Report Type: 
  Country: None (occurrence: None)
  Receive Date: 20060303
  Receipt Date: 20060221
  Transmission Date: 20060701
  Serious: Yes (Other)
  Sender: FDA-Public Use
  Company Number: 2006025671

PATIENT
  Age: 36 Year
  Sex: Female
  Weight: 41.7309 kg

DRUGS (1)
  1. ROLAIDS (MAGNESIUM HYDROXIDE, CALCIUM CARBONATE) [Suspect]
     Indication: DYSPEPSIA
     Dosage: ONE TABLET TWICE, ORAL
     Route: 048
     Dates: start: 20030101, end: 20030101

REACTIONS (1)
  - BLOOD PRESSURE INCREASED [None]
